FAERS Safety Report 18288617 (Version 1)
Quarter: 2020Q3

REPORT INFORMATION
  Report Type: Spontaneous
  Country: US (occurrence: US)
  Receive Date: 20200919
  Receipt Date: 20200919
  Transmission Date: 20201103
  Serious: Yes (Hospitalization)
  Sender: FDA-Public Use
  Company Number: None

PATIENT
  Age: 79 Year
  Sex: Female
  Weight: 58 kg

DRUGS (14)
  1. METOPROLOL TARTRATE. [Suspect]
     Active Substance: METOPROLOL TARTRATE
     Indication: CARDIAC FLUTTER
     Route: 048
     Dates: start: 20200905, end: 20200908
  2. CENTRAL LINE PORT REPLACEMENT [Concomitant]
  3. AREDS [Concomitant]
     Active Substance: MINERALS\VITAMINS
  4. CITROCAL [Concomitant]
  5. LEVOTHYROXINE VITAMINS [Concomitant]
  6. METOPROLOL TARTRATE. [Suspect]
     Active Substance: METOPROLOL TARTRATE
     Indication: VENTRICULAR EXTRASYSTOLES
     Route: 048
     Dates: start: 20200905, end: 20200908
  7. KEFLEX [Concomitant]
     Active Substance: CEPHALEXIN
  8. FLONASE [Concomitant]
     Active Substance: FLUTICASONE PROPIONATE
  9. RIGHT CHEST XCELA POWER INJECTABLE [Concomitant]
  10. ELLURA [Concomitant]
     Active Substance: DIETARY SUPPLEMENT
  11. METOPROLOL TARTRATE. [Suspect]
     Active Substance: METOPROLOL TARTRATE
     Indication: HYPERTENSION
     Route: 048
     Dates: start: 20200905, end: 20200908
  12. CENTRUM [Concomitant]
     Active Substance: VITAMINS
  13. CLIMARA [Concomitant]
     Active Substance: ESTRADIOL
  14. ASPIRIN. [Concomitant]
     Active Substance: ASPIRIN

REACTIONS (8)
  - Product dispensing error [None]
  - Hypotension [None]
  - Feeling abnormal [None]
  - Therapy interrupted [None]
  - Heart rate decreased [None]
  - Blood pressure increased [None]
  - Sinus bradycardia [None]
  - Incorrect dose administered [None]

NARRATIVE: CASE EVENT DATE: 20200908
